FAERS Safety Report 15776316 (Version 1)
Quarter: 2018Q4

REPORT INFORMATION
  Report Type: Spontaneous
  Country: JP (occurrence: JP)
  Receive Date: 20181231
  Receipt Date: 20181231
  Transmission Date: 20190205
  Serious: Yes (Other)
  Sender: FDA-Public Use
  Company Number: JP-CORDEN PHARMA LATINA S.P.A.-JP-2018COR000163

PATIENT
  Age: 11 Year
  Sex: Male

DRUGS (8)
  1. THIOTEPA. [Suspect]
     Active Substance: THIOTEPA
     Indication: MEDULLOBLASTOMA
     Dosage: 800 MG/M? CUMULATIVE DOSE, 1 CYCLE
     Route: 065
  2. MELPHALAN. [Suspect]
     Active Substance: MELPHALAN
     Indication: MEDULLOBLASTOMA
     Dosage: 280 MG/M? CUMULATIVE DOSE, 1 CYCLE
     Route: 065
  3. DEXAMETHASONE. [Concomitant]
     Active Substance: DEXAMETHASONE
     Indication: MEDULLOBLASTOMA
     Dosage: UNK, 6 INJECTIONS
     Route: 037
  4. METHOTREXATE. [Suspect]
     Active Substance: METHOTREXATE
     Indication: MEDULLOBLASTOMA
     Dosage: 72 MG/BODY, CUMULATIVE DOSE, 6 INJECTIONS
     Route: 037
  5. ETOPOSIDE. [Suspect]
     Active Substance: ETOPOSIDE
     Indication: MEDULLOBLASTOMA
     Dosage: 14,000 MG/M? CUMULATIVE DOSE, 4 CYCLES FOLLOWED BY 2 YEARS OF TREATMENT
     Route: 065
  6. VINCRISTINE [Suspect]
     Active Substance: VINCRISTINE
     Indication: MEDULLOBLASTOMA
     Dosage: 0.6 MG/M? CUMULATIVE DOSE, 4 CYCLES
     Route: 065
  7. CYCLOPHOSPHAMIDE. [Suspect]
     Active Substance: CYCLOPHOSPHAMIDE
     Indication: MEDULLOBLASTOMA
     Dosage: 12,000 MG/M? CUMULATIVE DOSE, 4 CYCLES
     Route: 065
  8. CISPLATIN. [Suspect]
     Active Substance: CISPLATIN
     Indication: MEDULLOBLASTOMA
     Dosage: 360 MG/M? CUMULATIVE DOSE, 4 CYCLES
     Route: 065

REACTIONS (2)
  - Osteosarcoma [Recovered/Resolved]
  - Second primary malignancy [Recovered/Resolved]
